FAERS Safety Report 5188007-0 (Version None)
Quarter: 2006Q4

REPORT INFORMATION
  Report Type: 
  Country: None (occurrence: None)
  Receive Date: 20061214
  Receipt Date: 20061214
  Transmission Date: 20070319
  Serious: Yes (Hospitalization)
  Sender: FDA-Public Use
  Company Number: None

PATIENT
  Age: 76 Year
  Sex: Female

DRUGS (15)
  1. LEVOFLOXACIN [Suspect]
     Indication: CELLULITIS
     Dosage: 500MG Q48H IV
     Route: 042
     Dates: start: 20060508, end: 20060512
  2. GADODIAMIDE 287 MG/ML AMERSHAM HEALTH [Suspect]
     Indication: NUCLEAR MAGNETIC RESONANCE IMAGING
     Dosage: 40ML ONCE IV
     Route: 042
     Dates: start: 20060516, end: 20060516
  3. WARFARIN SODIUM [Concomitant]
  4. PANTOPRAZOLE SODIUM [Concomitant]
  5. BOSENTAN [Concomitant]
  6. ALLOPURINOL SODIUM [Concomitant]
  7. CANDESARTAN [Concomitant]
  8. INSULIN GLARGINE [Concomitant]
  9. INSULIN [Concomitant]
  10. ISOSORBIDE DINITRATE [Concomitant]
  11. LEVOTHYROXINE SODIUM [Concomitant]
  12. ATORVASTATIN CALCIUM [Concomitant]
  13. METOCLOPRAMIDE [Concomitant]
  14. METOPROLOL SUCCINATE [Concomitant]
  15. AMLODIPINE [Concomitant]

REACTIONS (6)
  - CELLULITIS [None]
  - CULTURE WOUND POSITIVE [None]
  - ENTEROCOCCAL INFECTION [None]
  - NEPHRITIS INTERSTITIAL [None]
  - PSEUDOMONAS INFECTION [None]
  - RENAL FAILURE [None]
